FAERS Safety Report 16123924 (Version 3)
Quarter: 2019Q3

REPORT INFORMATION
  Report Type: Report from Study
  Country: IT (occurrence: IT)
  Receive Date: 20190327
  Receipt Date: 20190718
  Transmission Date: 20191004
  Serious: Yes (Hospitalization, Other)
  Sender: FDA-Public Use
  Company Number: IT-PFIZER INC-2019129580

PATIENT
  Age: 44 Year
  Sex: Male

DRUGS (3)
  1. SERTRALINE HCL [Suspect]
     Active Substance: SERTRALINE HYDROCHLORIDE
     Indication: SUICIDE ATTEMPT
     Dosage: 600 MG, TOTAL (6 TABLETS)
     Route: 048
     Dates: start: 20190309, end: 20190309
  2. QUETIAPINA [QUETIAPINE] [Suspect]
     Active Substance: QUETIAPINE
     Indication: SUICIDE ATTEMPT
     Dosage: 150 MG, TOTAL
     Route: 048
     Dates: start: 20190309, end: 20190309
  3. DEPAKIN CHRONO [VALPROATE SODIUM] [Suspect]
     Active Substance: VALPROATE SODIUM
     Indication: SUICIDE ATTEMPT
     Dosage: 3.5 G, TOTAL (7 TABLETS)
     Route: 048
     Dates: start: 20190309, end: 20190309

REACTIONS (6)
  - Drug abuse [Unknown]
  - Toxicity to various agents [Recovering/Resolving]
  - Sedation [Recovering/Resolving]
  - Suicide attempt [Unknown]
  - Intentional overdose [Recovering/Resolving]
  - Somnolence [Recovering/Resolving]

NARRATIVE: CASE EVENT DATE: 20190309
